FAERS Safety Report 6673331-2 (Version None)
Quarter: 2010Q2

REPORT INFORMATION
  Report Type: 
  Country: None (occurrence: None)
  Receive Date: 20100408
  Receipt Date: 20100329
  Transmission Date: 20101027
  Serious: Yes (Other)
  Sender: FDA-Public Use
  Company Number: US-JNJFOC-20091106022

PATIENT
  Sex: Female

DRUGS (6)
  1. REMICADE [Suspect]
     Indication: RHEUMATOID ARTHRITIS
     Route: 042
     Dates: start: 20061018, end: 20091102
  2. REMICADE [Suspect]
     Route: 042
     Dates: start: 20061018, end: 20091102
  3. REMICADE [Suspect]
     Route: 042
     Dates: start: 20061018, end: 20091102
  4. REMICADE [Suspect]
     Dosage: (DOSE AND FREQUENCY UNSPECIFIED)
     Route: 042
     Dates: start: 20061018, end: 20091102
  5. REMICADE [Suspect]
     Route: 042
     Dates: start: 20061018, end: 20091102
  6. REMICADE [Suspect]
     Route: 042
     Dates: start: 20061018, end: 20091102

REACTIONS (2)
  - CHRONIC OBSTRUCTIVE PULMONARY DISEASE [None]
  - LARYNGEAL OEDEMA [None]
